FAERS Safety Report 21372137 (Version 2)
Quarter: 2022Q4

REPORT INFORMATION
  Report Type: Spontaneous
  Country: US (occurrence: US)
  Receive Date: 20220923
  Receipt Date: 20221006
  Transmission Date: 20230113
  Serious: Yes (Other)
  Sender: FDA-Public Use
  Company Number: US-ALLERGAN-2230471US

PATIENT
  Age: 45 Year
  Sex: Male

DRUGS (1)
  1. VRAYLAR [Suspect]
     Active Substance: CARIPRAZINE
     Indication: Bipolar I disorder
     Dosage: 1.5 MG, QD
     Route: 048
     Dates: start: 202206, end: 202209

REACTIONS (2)
  - Blindness transient [Recovered/Resolved]
  - Vision blurred [Recovered/Resolved]
